FAERS Safety Report 5494105-4 (Version None)
Quarter: 2007Q4

REPORT INFORMATION
  Report Type: 
  Country: None (occurrence: None)
  Receive Date: 20071022
  Receipt Date: 20071006
  Transmission Date: 20080405
  Serious: Yes (Death)
  Sender: FDA-Public Use
  Company Number: 2007S1000338

PATIENT
  Age: 66 Year
  Sex: Female

DRUGS (3)
  1. CUBICIN [Suspect]
     Indication: ENTEROCOCCAL INFECTION
     Dosage: 4 MG/KG; Q24H, IV
     Route: 042
  2. CHEMOTHERAPEUTICS NOS [Concomitant]
  3. LINEZOLID [Concomitant]

REACTIONS (7)
  - BLOOD CULTURE POSITIVE [None]
  - CANDIDIASIS [None]
  - DISEASE RECURRENCE [None]
  - ENTEROCOCCAL BACTERAEMIA [None]
  - MENINGITIS ENTEROCOCCAL [None]
  - SOMNOLENCE [None]
  - THROMBOCYTOPENIA [None]
